FAERS Safety Report 6125091-1 (Version None)
Quarter: 2009Q1

REPORT INFORMATION
  Report Type: 
  Country: None (occurrence: None)
  Receive Date: 20090319
  Receipt Date: 20090312
  Transmission Date: 20090719
  Serious: Yes (Hospitalization)
  Sender: FDA-Public Use
  Company Number: FR-MERCK-0903FRA00044

PATIENT
  Age: 73 Year
  Sex: Female

DRUGS (6)
  1. FOSAMAX [Suspect]
     Indication: OSTEOPOROSIS
     Route: 048
     Dates: start: 20070601, end: 20090108
  2. FLAVOXATE HYDROCHLORIDE [Suspect]
     Indication: DYSURIA
     Route: 048
     Dates: start: 20081117, end: 20081230
  3. PROMESTRIENE [Suspect]
     Indication: MUCOSAL DRYNESS
     Route: 067
     Dates: start: 20081117, end: 20081230
  4. CALCIUM CARBONATE AND CHOLECALCIFEROL [Suspect]
     Indication: VITAMIN D DEFICIENCY
     Route: 048
     Dates: start: 20070601, end: 20090113
  5. URAPIDIL [Suspect]
     Indication: HYPERTENSION
     Route: 048
     Dates: start: 20061201, end: 20090113
  6. HYDROCHLOROTHIAZIDE AND IRBESARTAN [Suspect]
     Indication: HYPERTENSION
     Route: 048
     Dates: start: 20061201, end: 20090113

REACTIONS (1)
  - DRUG RASH WITH EOSINOPHILIA AND SYSTEMIC SYMPTOMS [None]
